FAERS Safety Report 24129539 (Version 3)
Quarter: 2024Q3

REPORT INFORMATION
  Report Type: Report from Study
  Country: FR (occurrence: FR)
  Receive Date: 20240723
  Receipt Date: 20240802
  Transmission Date: 20241016
  Serious: Yes (Death, Hospitalization, Other)
  Sender: NOVARTIS
  Company Number: FR-002147023-NVSC2024FR147452

PATIENT
  Age: 67 Year
  Sex: Male
  Weight: 73 kg

DRUGS (5)
  1. PLUVICTO [Suspect]
     Active Substance: LUTETIUM LU-177 VIPIVOTIDE TETRAXETAN
     Indication: Hormone-refractory prostate cancer
     Dosage: 7189 MBQ, CYCLIC, 1ST CYCLE
     Route: 042
     Dates: start: 20240221, end: 20240221
  2. PLUVICTO [Suspect]
     Active Substance: LUTETIUM LU-177 VIPIVOTIDE TETRAXETAN
     Dosage: 7009 MBQ, CYCLIC, 2ND CYCLE
     Route: 042
     Dates: start: 20240403, end: 20240403
  3. XGEVA [Concomitant]
     Active Substance: DENOSUMAB
     Indication: Product used for unknown indication
     Dosage: UNK, 1ST, 2ND CYCLE
     Route: 065
  4. DECAPEPTYL [Concomitant]
     Indication: Hormone-refractory prostate cancer
     Dosage: UNK
     Route: 065
  5. PERINDOPRIL [Concomitant]
     Active Substance: PERINDOPRIL
     Indication: Product used for unknown indication
     Dosage: UNK
     Route: 065

REACTIONS (7)
  - Headache [Fatal]
  - Subdural haematoma [Fatal]
  - Thrombocytopenia [Not Recovered/Not Resolved]
  - Motor dysfunction [Unknown]
  - Vomiting [Unknown]
  - Nausea [Unknown]
  - Nervous system disorder [Unknown]

NARRATIVE: CASE EVENT DATE: 20240514
